FAERS Safety Report 4959417-9 (Version None)
Quarter: 2006Q1

REPORT INFORMATION
  Report Type: 
  Country: None (occurrence: None)
  Receive Date: 20060331
  Receipt Date: 20060309
  Transmission Date: 20060701
  Serious: Yes (Death, Hospitalization, Other)
  Sender: FDA-Public Use
  Company Number: US-MERCK-0603USA01713

PATIENT
  Age: 78 Year
  Sex: Female
  Weight: 73 kg

DRUGS (13)
  1. VIOXX [Suspect]
     Indication: ARTHRITIS
     Route: 048
     Dates: start: 20010618, end: 20020803
  2. DETROL LA [Concomitant]
     Route: 065
  3. ZESTRIL [Concomitant]
     Route: 065
  4. GUAIFENEX [Concomitant]
     Route: 065
  5. DILTIA XT [Concomitant]
     Route: 065
  6. LIPITOR [Concomitant]
     Route: 065
  7. SYNTHROID [Concomitant]
     Route: 065
  8. FOLIC ACID [Concomitant]
     Route: 065
  9. ULTRACET [Concomitant]
     Route: 065
  10. HYDROCODONE BITARTRATE [Concomitant]
     Route: 065
  11. NEURONTIN [Concomitant]
     Route: 065
  12. MICARDIS HCT [Concomitant]
     Route: 065
  13. ELOCON [Concomitant]
     Route: 065

REACTIONS (6)
  - ATRIAL FIBRILLATION [None]
  - CARDIAC FAILURE CONGESTIVE [None]
  - CARDIOVASCULAR DISORDER [None]
  - CEREBROVASCULAR ACCIDENT [None]
  - GALLBLADDER DISORDER [None]
  - ISCHAEMIC STROKE [None]
